FAERS Safety Report 8129666-X (Version None)
Quarter: 2012Q1

REPORT INFORMATION
  Report Type: 
  Country: None (occurrence: None)
  Receive Date: 20120210
  Receipt Date: 20120202
  Transmission Date: 20120608
  Serious: Yes (Hospitalization, Other)
  Sender: FDA-Public Use
  Company Number: US-ABBOTT-12P-163-0892963-00

PATIENT
  Sex: Female

DRUGS (17)
  1. IRON [Concomitant]
     Indication: PRODUCT USED FOR UNKNOWN INDICATION
  2. ALDACTONE [Concomitant]
     Indication: HYPERTENSION
  3. LYRICA [Concomitant]
     Indication: FIBROMYALGIA
  4. FOSAMAX [Concomitant]
     Indication: OSTEOPOROSIS
  5. CLARITIN [Concomitant]
     Indication: PRODUCT USED FOR UNKNOWN INDICATION
  6. IMODIUM [Concomitant]
     Indication: PRODUCT USED FOR UNKNOWN INDICATION
  7. HUMIRA [Suspect]
     Indication: RHEUMATOID ARTHRITIS
  8. ASACOL [Concomitant]
     Indication: PRODUCT USED FOR UNKNOWN INDICATION
  9. REQUIP [Concomitant]
     Indication: RESTLESS LEGS SYNDROME
     Route: 048
  10. IMURAN [Concomitant]
     Indication: CROHN'S DISEASE
  11. HUMIRA [Suspect]
     Indication: CROHN'S DISEASE
  12. NEXIUM [Concomitant]
     Indication: GASTROOESOPHAGEAL REFLUX DISEASE
     Route: 048
  13. PREDNISONE [Concomitant]
     Indication: INFLAMMATION
  14. CYMBALTA [Concomitant]
     Indication: PRODUCT USED FOR UNKNOWN INDICATION
  15. FLEXERIL [Concomitant]
     Indication: MYALGIA
     Route: 048
  16. HUMIRA [Suspect]
     Indication: COLITIS ULCERATIVE
     Dosage: LOADING DOSE
     Dates: start: 20120104, end: 20120104
  17. LORTAB [Concomitant]
     Indication: PAIN
     Dosage: 10/325 MG, 1 EVERY 6 HOURS PRN

REACTIONS (6)
  - PERIPHERAL COLDNESS [None]
  - HYPOAESTHESIA [None]
  - CYANOSIS [None]
  - MUSCLE SPASMS [None]
  - PAIN IN EXTREMITY [None]
  - THROMBOSIS [None]
